FAERS Safety Report 5453599-0 (Version None)
Quarter: 2007Q3

REPORT INFORMATION
  Report Type: 
  Country: None (occurrence: None)
  Receive Date: 20070917
  Receipt Date: 20070906
  Transmission Date: 20080115
  Serious: Yes (Hospitalization)
  Sender: FDA-Public Use
  Company Number: PHHO2007NL14706

PATIENT
  Age: 19 Year
  Weight: 77 kg

DRUGS (3)
  1. MYCOPHENOLIC ACID ERL+ [Suspect]
     Indication: RENAL TRANSPLANT
  2. NEORAL [Suspect]
     Indication: RENAL TRANSPLANT
  3. PREDNISOLONE [Suspect]
     Indication: RENAL TRANSPLANT

REACTIONS (2)
  - DRUG INEFFECTIVE [None]
  - KIDNEY TRANSPLANT REJECTION [None]
